FAERS Safety Report 13652474 (Version 1)
Quarter: 2017Q2

REPORT INFORMATION
  Report Type: Spontaneous
  Country: US (occurrence: US)
  Receive Date: 20170614
  Receipt Date: 20170614
  Transmission Date: 20170830
  Serious: No
  Sender: FDA-Public Use
  Company Number: US-ROCHE-1359554

PATIENT
  Age: 76 Year
  Sex: Female

DRUGS (10)
  1. ZOLOFT [Concomitant]
     Active Substance: SERTRALINE HYDROCHLORIDE
     Indication: DEPRESSION
     Route: 065
  2. PEPCID [Concomitant]
     Active Substance: FAMOTIDINE
     Dosage: REPLACED PRILOSEC
     Route: 065
  3. WELLBUTRIN [Concomitant]
     Active Substance: BUPROPION HYDROCHLORIDE
     Dosage: SHORTLY AFTER CANCER DIAGNOSIS
     Route: 048
  4. PRILOSEC [Concomitant]
     Active Substance: OMEPRAZOLE MAGNESIUM
     Dosage: DISCONTINUED AND REPLACED WITH PEPCID
     Route: 065
  5. OXYBUTYNIN [Concomitant]
     Active Substance: OXYBUTYNIN
     Dosage: FOR 5 YEARS, STOPPED 2 MONTHS AGO,
     Route: 065
  6. DILTIAZEM. [Concomitant]
     Active Substance: DILTIAZEM
     Route: 065
  7. XELODA [Suspect]
     Active Substance: CAPECITABINE
     Indication: BREAST CANCER METASTATIC
     Dosage: 1 WEEK ON, 1 WEEK, 3 IN AM, 2 IN PM
     Route: 065
     Dates: start: 201307
  8. BENZONATATE. [Concomitant]
     Active Substance: BENZONATATE
     Indication: CROUP INFECTIOUS
     Dosage: START SHORTLY AFTER SHE CANCER DIAGNOSIS, AS NEEDED
     Route: 065
     Dates: start: 2013
  9. LORAZEPAM. [Concomitant]
     Active Substance: LORAZEPAM
     Indication: ANXIETY
     Dosage: AS NEEDED
     Route: 065
  10. MODAFINIL. [Concomitant]
     Active Substance: MODAFINIL
     Route: 065

REACTIONS (3)
  - Pain in extremity [Unknown]
  - Palmar-plantar erythrodysaesthesia syndrome [Not Recovered/Not Resolved]
  - Nervousness [Unknown]

NARRATIVE: CASE EVENT DATE: 20140301
